FAERS Safety Report 23246185 (Version 1)
Quarter: 2023Q4

REPORT INFORMATION
  Report Type: Spontaneous
  Country: JP (occurrence: JP)
  Receive Date: 20231130
  Receipt Date: 20231130
  Transmission Date: 20240110
  Serious: Yes (Hospitalization, Other)
  Sender: FDA-Public Use
  Company Number: JP-002147023-NVSC2023JP251600

PATIENT
  Age: 57 Year
  Sex: Male

DRUGS (2)
  1. PAZOPANIB [Suspect]
     Active Substance: PAZOPANIB
     Indication: Solitary fibrous tumour
     Dosage: UNK
     Route: 065
  2. DEXTROSE [Concomitant]
     Active Substance: DEXTROSE\DEXTROSE MONOHYDRATE
     Indication: Paraneoplastic hypoglycaemia
     Dosage: UNK
     Route: 042

REACTIONS (4)
  - Thrombophlebitis [Recovering/Resolving]
  - Solitary fibrous tumour [Unknown]
  - Malignant neoplasm progression [Unknown]
  - Product use in unapproved indication [Unknown]
